FAERS Safety Report 11447170 (Version 5)
Quarter: 2015Q4

REPORT INFORMATION
  Report Type: Spontaneous
  Country: BR (occurrence: BR)
  Receive Date: 20150902
  Receipt Date: 20151028
  Transmission Date: 20160304
  Serious: Yes (Other)
  Sender: FDA-Public Use
  Company Number: PHHY2015BR105020

PATIENT
  Age: 55 Year
  Sex: Female
  Weight: 80 kg

DRUGS (3)
  1. DIOVAN HCT [Suspect]
     Active Substance: HYDROCHLOROTHIAZIDE\VALSARTAN
     Indication: HYPERTENSION
     Dosage: 1 DF (TABLET OF 160/25 MG), BID (ONE IN THE MORNING AND ONE AT NIGHT)
     Route: 048
  2. SLOW K [Suspect]
     Active Substance: POTASSIUM CHLORIDE
     Indication: ELECTROLYTE SUBSTITUTION THERAPY
     Dosage: 1 DF, QD
     Route: 048
     Dates: start: 2008
  3. DIOVAN HCT [Suspect]
     Active Substance: HYDROCHLOROTHIAZIDE\VALSARTAN
     Dosage: 2 DF (USED ONE OF 80/12.5 MG BT IF HER BLOOD PRESSURE INCREASED, SHE USED TWO), QD
     Route: 048
     Dates: start: 2014

REACTIONS (7)
  - Back pain [Unknown]
  - Arrhythmia [Unknown]
  - Cardiac disorder [Unknown]
  - Hypokalaemia [Unknown]
  - Urinary incontinence [Unknown]
  - Blood pressure increased [Unknown]
  - Cardiac arrest [Unknown]

NARRATIVE: CASE EVENT DATE: 20061114
